FAERS Safety Report 8000204-5 (Version None)
Quarter: 2011Q4

REPORT INFORMATION
  Report Type: 
  Country: None (occurrence: None)
  Receive Date: 20111220
  Receipt Date: 20111220
  Transmission Date: 20120403
  Serious: Yes (Hospitalization)
  Sender: FDA-Public Use
  Company Number: None

PATIENT
  Age: 70 Year
  Sex: Female

DRUGS (1)
  1. DORZOLAMIDE/TIMOLOL 2%/0.5% PRASCO [Suspect]
     Indication: GLAUCOMA
     Dosage: USE 4 EYE DROPS DAILY
     Dates: start: 20110911

REACTIONS (2)
  - DYSPNOEA [None]
  - DRUG HYPERSENSITIVITY [None]
